FAERS Safety Report 4426765-0 (Version None)
Quarter: 2004Q3

REPORT INFORMATION
  Report Type: 
  Country: None (occurrence: None)
  Receive Date: 20040812
  Receipt Date: 20040812
  Transmission Date: 20050211
  Serious: Yes (Hospitalization)
  Sender: FDA-Public Use
  Company Number: None

PATIENT
  Age: 42 Year
  Sex: Female
  Weight: 76.6579 kg

DRUGS (5)
  1. PACLITAXEL [Suspect]
     Indication: BREAST CANCER
     Dosage: 146-169 MG IV WEEKLY
     Route: 042
     Dates: start: 20040528, end: 20040730
  2. TYLENOL [Concomitant]
  3. BENADRYL [Concomitant]
  4. KYTRIL [Concomitant]
  5. DEXAMETHASONE [Concomitant]

REACTIONS (7)
  - ARTHRALGIA [None]
  - ASTHENIA [None]
  - CHILLS [None]
  - JOINT SWELLING [None]
  - MASS [None]
  - PYREXIA [None]
  - TENDERNESS [None]
